FAERS Safety Report 9580694 (Version 1)
Quarter: 2013Q3

REPORT INFORMATION
  Report Type: Spontaneous
  Country: US (occurrence: None)
  Receive Date: 20130916
  Receipt Date: 20130916
  Transmission Date: 20140515
  Serious: Yes (Disabling)
  Sender: FDA-Public Use
  Company Number: JPI-P-026979

PATIENT
  Age: 41 Year
  Sex: Female

DRUGS (2)
  1. XYREM [Suspect]
     Indication: FIBROMYALGIA
     Route: 048
     Dates: start: 20051213
  2. DULOXETINE HYDROCHLORIDE [Suspect]
     Indication: FIBROMYALGIA

REACTIONS (8)
  - Drug withdrawal syndrome [None]
  - Decreased appetite [None]
  - Insomnia [None]
  - Tremor [None]
  - Dizziness [None]
  - Hyperhidrosis [None]
  - Nervousness [None]
  - Feeling abnormal [None]
